FAERS Safety Report 9711713 (Version 2)
Quarter: 2013Q4

REPORT INFORMATION
  Report Type: Spontaneous
  Country: US (occurrence: US)
  Receive Date: 20131126
  Receipt Date: 20131126
  Transmission Date: 20140711
  Serious: No
  Sender: FDA-Public Use
  Company Number: US-BRISTOL-MYERS SQUIBB COMPANY-19098631

PATIENT
  Age: 51 Year
  Sex: Female

DRUGS (3)
  1. BYDUREON [Suspect]
     Dates: start: 20130701
  2. JANUMET [Concomitant]
     Dosage: 1DF:50/1000MG
  3. ACTOS [Concomitant]

REACTIONS (1)
  - Metrorrhagia [Unknown]
